FAERS Safety Report 18997394 (Version 1)
Quarter: 2021Q1

REPORT INFORMATION
  Report Type: Spontaneous
  Country: NL (occurrence: NL)
  Receive Date: 20210311
  Receipt Date: 20210311
  Transmission Date: 20210420
  Serious: Yes (Other)
  Sender: FDA-Public Use
  Company Number: NL-MYLANLABS-2021M1013307

PATIENT
  Age: 67 Year
  Sex: Male
  Weight: 76 kg

DRUGS (3)
  1. CANDESARTAN. [Suspect]
     Active Substance: CANDESARTAN
     Indication: HYPERTENSION
     Dosage: 1X PER DAY 1
     Dates: start: 20201229
  2. HUMIRA [Concomitant]
     Active Substance: ADALIMUMAB
     Dosage: INJECTION LIQUID, 100 MG / ML (MILLIGRAM PER MILLILITER)
  3. CALCI CHEW D3 [Concomitant]
     Active Substance: CALCIUM CARBONATE\CHOLECALCIFEROL
     Dosage: 500 MG + VITAMINE D3, 500MG/400IE

REACTIONS (2)
  - Syncope [Recovered/Resolved]
  - Dizziness [Recovered/Resolved]

NARRATIVE: CASE EVENT DATE: 20210111
